FAERS Safety Report 10549698 (Version 5)
Quarter: 2015Q1

REPORT INFORMATION
  Report Type: Spontaneous
  Country: US (occurrence: US)
  Receive Date: 20141028
  Receipt Date: 20150204
  Transmission Date: 20150720
  Serious: Yes (Other)
  Sender: FDA-Public Use
  Company Number: US-PFIZER INC-2014295807

PATIENT
  Age: 50 Year
  Sex: Male

DRUGS (1)
  1. LYRICA [Suspect]
     Active Substance: PREGABALIN
     Indication: NEURALGIA
     Dosage: 300 MG, 2X/DAY 1 TAB
     Dates: start: 201304, end: 20130706

REACTIONS (14)
  - Blindness [Not Recovered/Not Resolved]
  - Uveitis [Unknown]
  - Impaired work ability [Unknown]
  - Retinal haemorrhage [Unknown]
  - Accident [Unknown]
  - Papilloedema [Unknown]
  - Asthenopia [Unknown]
  - Tunnel vision [Unknown]
  - Diabetic retinopathy [Unknown]
  - Optic neuritis [Unknown]
  - Optic atrophy [Unknown]
  - Papillitis [Unknown]
  - Visual field defect [Unknown]
  - Cataract [Unknown]

NARRATIVE: CASE EVENT DATE: 20130701
